FAERS Safety Report 19696919 (Version 1)
Quarter: 2021Q3

REPORT INFORMATION
  Report Type: Spontaneous
  Country: US (occurrence: US)
  Receive Date: 20210813
  Receipt Date: 20210813
  Transmission Date: 20211014
  Serious: Yes (Death, Hospitalization)
  Sender: FDA-Public Use
  Company Number: None

PATIENT
  Age: 64 Year
  Sex: Male
  Weight: 108 kg

DRUGS (3)
  1. PREDNISONE. [Suspect]
     Active Substance: PREDNISONE
     Dates: end: 20201125
  2. ABIRATERONE ACETATE. [Suspect]
     Active Substance: ABIRATERONE ACETATE
     Dates: end: 20201125
  3. CABAZITAXEL [Suspect]
     Active Substance: CABAZITAXEL
     Dates: end: 20201125

REACTIONS (1)
  - Death [None]

NARRATIVE: CASE EVENT DATE: 20201208
